FAERS Safety Report 7025177-3 (Version None)
Quarter: 2010Q4

REPORT INFORMATION
  Report Type: 
  Country: None (occurrence: None)
  Receive Date: 20101001
  Receipt Date: 20100927
  Transmission Date: 20110411
  Serious: Yes (Other)
  Sender: FDA-Public Use
  Company Number: US-JNJCH-2010014062

PATIENT
  Age: 56 Year
  Sex: Female
  Weight: 48.5 kg

DRUGS (3)
  1. BENGAY ULTRA STRENGTH PATCH [Suspect]
     Indication: BACK PAIN
     Dosage: TEXT:ONE PATCH ONCE
     Route: 061
     Dates: start: 20100509, end: 20100509
  2. LOVAZA [Concomitant]
     Indication: SUPPLEMENTATION THERAPY
     Dosage: TEXT:2 DAILY
     Route: 065
  3. BORAGE OIL [Concomitant]
     Indication: SUPPLEMENTATION THERAPY
     Dosage: TEXT:2 DAILY
     Route: 065

REACTIONS (5)
  - APPLICATION SITE BURN [None]
  - BACTERIAL INFECTION [None]
  - IMPAIRED WORK ABILITY [None]
  - PAIN [None]
  - SKIN EXFOLIATION [None]
